FAERS Safety Report 8218195-0 (Version None)
Quarter: 2012Q1

REPORT INFORMATION
  Report Type: 
  Country: None (occurrence: None)
  Receive Date: 20120319
  Receipt Date: 20120308
  Transmission Date: 20120608
  Serious: Yes (Hospitalization, Other)
  Sender: FDA-Public Use
  Company Number: US-SANOFI-AVENTIS-2012SA015998

PATIENT
  Age: 66 Year
  Sex: Male

DRUGS (2)
  1. LANTUS [Suspect]
     Dosage: DOSE:40 UNIT(S)
     Route: 058
     Dates: start: 20120307
  2. SOLOSTAR [Suspect]
     Dates: start: 20120307

REACTIONS (3)
  - INJECTION SITE HAEMORRHAGE [None]
  - INSOMNIA [None]
  - PERIRECTAL ABSCESS [None]
